FAERS Safety Report 5222251-9 (Version None)
Quarter: 2007Q1

REPORT INFORMATION
  Report Type: 
  Country: None (occurrence: None)
  Receive Date: 20070129
  Receipt Date: 20061127
  Transmission Date: 20070707
  Serious: No
  Sender: FDA-Public Use
  Company Number: US-GLAXOSMITHKLINE-A0628676A

PATIENT
  Sex: Female

DRUGS (5)
  1. WELLBUTRIN [Suspect]
     Indication: DEPRESSION
     Dosage: 75MG THREE TIMES PER DAY
     Route: 048
  2. NICODERM CQ [Concomitant]
     Route: 062
  3. DEPAKOTE [Concomitant]
  4. SLEEPING PILLS [Concomitant]
  5. KLONOPIN [Concomitant]

REACTIONS (2)
  - NERVOUSNESS [None]
  - POOR QUALITY SLEEP [None]
